FAERS Safety Report 6772356-6 (Version None)
Quarter: 2010Q2

REPORT INFORMATION
  Report Type: 
  Country: None (occurrence: None)
  Receive Date: 20100616
  Receipt Date: 20091027
  Transmission Date: 20101027
  Serious: No
  Sender: FDA-Public Use
  Company Number: US-ASTRAZENECA-2009SE22816

PATIENT
  Age: 74 Year
  Sex: Male
  Weight: 88.5 kg

DRUGS (6)
  1. PULMICORT RESPULES [Suspect]
     Indication: CHRONIC OBSTRUCTIVE PULMONARY DISEASE
     Dosage: 0.5 MG/ML, BID
     Route: 055
  2. NITROGLYCERIN [Concomitant]
  3. ASPIRIN [Concomitant]
  4. NIACIN [Concomitant]
  5. BENICAR [Concomitant]
     Indication: HYPERTENSION
  6. BROVANA [Concomitant]

REACTIONS (1)
  - DYSPNOEA [None]
